FAERS Safety Report 17405248 (Version 2)
Quarter: 2020Q1

REPORT INFORMATION
  Report Type: Spontaneous
  Country: IL (occurrence: IL)
  Receive Date: 20200212
  Receipt Date: 20200225
  Transmission Date: 20200409
  Serious: Yes (Death, Life-Threatening, Hospitalization)
  Sender: FDA-Public Use
  Company Number: IL-TEVA-2020-IL-1182977

PATIENT
  Age: 3 Month
  Sex: Female

DRUGS (1)
  1. DEXAMETHASONE. [Suspect]
     Active Substance: DEXAMETHASONE
     Indication: CUSHING^S SYNDROME
     Route: 065

REACTIONS (9)
  - Pneumonitis [Fatal]
  - Respiratory failure [Fatal]
  - Pneumocystis jirovecii infection [Fatal]
  - Steroid withdrawal syndrome [Fatal]
  - Cortisol increased [Recovered/Resolved]
  - Hypokalaemia [Unknown]
  - Hypertension [Unknown]
  - Respiratory distress [Not Recovered/Not Resolved]
  - Paradoxical drug reaction [Recovered/Resolved]
